FAERS Safety Report 21574030 (Version 2)
Quarter: 2022Q4

REPORT INFORMATION
  Report Type: Report from Study
  Country: CA (occurrence: CA)
  Receive Date: 20221109
  Receipt Date: 20221129
  Transmission Date: 20230113
  Serious: Yes (Death, Other)
  Sender: FDA-Public Use
  Company Number: CA-TAKEDA-2022TUS083336

PATIENT
  Age: 69 Year
  Sex: Male

DRUGS (1)
  1. VEDOLIZUMAB [Suspect]
     Active Substance: VEDOLIZUMAB
     Indication: Crohn^s disease
     Dosage: 300 MILLIGRAM
     Route: 042
     Dates: start: 20220411, end: 202210

REACTIONS (4)
  - Bacterial infection [Fatal]
  - Multiple organ dysfunction syndrome [Fatal]
  - Cardiac failure congestive [Fatal]
  - Endocarditis [Fatal]
